FAERS Safety Report 16860811 (Version 1)
Quarter: 2019Q3

REPORT INFORMATION
  Report Type: Spontaneous
  Country: US (occurrence: US)
  Receive Date: 20190927
  Receipt Date: 20190927
  Transmission Date: 20191005
  Serious: No
  Sender: FDA-Public Use
  Company Number: US-PFIZER INC-2019417921

PATIENT
  Age: 88 Year
  Sex: Female
  Weight: 97.52 kg

DRUGS (1)
  1. LYRICA [Suspect]
     Active Substance: PREGABALIN
     Dosage: 75 MG, UNK

REACTIONS (4)
  - Back pain [Unknown]
  - Alopecia [Unknown]
  - Gait disturbance [Unknown]
  - Arthralgia [Unknown]
